FAERS Safety Report 8534446-7 (Version None)
Quarter: 2012Q3

REPORT INFORMATION
  Report Type: 
  Country: None (occurrence: None)
  Receive Date: 20120712
  Receipt Date: 20120629
  Transmission Date: 20120928
  Serious: Yes (Hospitalization)
  Sender: FDA-Public Use
  Company Number: IMP_05927_2012

PATIENT
  Age: 26 Year
  Sex: Male

DRUGS (4)
  1. DIVALPROEX SODIUM [Suspect]
     Indication: PRODUCT USED FOR UNKNOWN INDICATION
     Dosage: (DF [FREQUENCY UNKNOWN]), (2000 MG QD)
  2. QUETIAPINE [Suspect]
     Indication: PSYCHOTIC DISORDER
     Dosage: SEE IMAGE
  3. MIRTAZAPINE [Concomitant]
  4. CLONAZEPAM [Concomitant]

REACTIONS (9)
  - SUICIDAL IDEATION [None]
  - PSYCHOTIC DISORDER [None]
  - DRUG INTOLERANCE [None]
  - WHITE BLOOD CELL COUNT DECREASED [None]
  - INSOMNIA [None]
  - IRRITABILITY [None]
  - NEUTROPENIA [None]
  - DELUSION [None]
  - THINKING ABNORMAL [None]
